FAERS Safety Report 18761481 (Version 1)
Quarter: 2021Q1

REPORT INFORMATION
  Report Type: Spontaneous
  Country: US (occurrence: US)
  Receive Date: 20210119
  Receipt Date: 20210119
  Transmission Date: 20210419
  Serious: No
  Sender: FDA-Public Use
  Company Number: None

PATIENT
  Sex: Male

DRUGS (5)
  1. LORAZEPAM 0.5 MG [Concomitant]
     Active Substance: LORAZEPAM
     Dates: start: 20200129
  2. MECLIZINE [Suspect]
     Active Substance: MECLIZINE HYDROCHLORIDE
  3. FLUTICASONE NASAL SPRAY 50 MCG [Concomitant]
     Dates: start: 20200514, end: 20201120
  4. CARTIA XT [Concomitant]
     Active Substance: DILTIAZEM HYDROCHLORIDE
     Dates: start: 20200928
  5. FAMOTIDINE 20 MG [Concomitant]
     Active Substance: FAMOTIDINE
     Dates: start: 20200520

REACTIONS (4)
  - Head discomfort [None]
  - Back pain [None]
  - Feeling cold [None]
  - Dizziness [None]
